FAERS Safety Report 6079766-3 (Version None)
Quarter: 2009Q1

REPORT INFORMATION
  Report Type: 
  Country: None (occurrence: None)
  Receive Date: 20090217
  Receipt Date: 20090205
  Transmission Date: 20090719
  Serious: Yes (Other)
  Sender: FDA-Public Use
  Company Number: US-BAYER-200910478NA

PATIENT
  Age: 39 Year
  Sex: Female

DRUGS (1)
  1. MIRENA [Suspect]
     Indication: DRUG USE FOR UNKNOWN INDICATION
     Route: 015
     Dates: start: 20080320, end: 20081226

REACTIONS (3)
  - BLIGHTED OVUM [None]
  - BLOOD HUMAN CHORIONIC GONADOTROPIN POSITIVE [None]
  - GENITAL HAEMORRHAGE [None]
